FAERS Safety Report 5744854-5 (Version None)
Quarter: 2008Q2

REPORT INFORMATION
  Report Type: 
  Country: None (occurrence: None)
  Receive Date: 20080516
  Receipt Date: 20080508
  Transmission Date: 20081010
  Serious: Yes (Death)
  Sender: FDA-Public Use
  Company Number: E2020-02725-SPO-JP

PATIENT
  Age: 89 Year
  Sex: Female

DRUGS (2)
  1. ARICEPT [Suspect]
     Indication: DEMENTIA ALZHEIMER'S TYPE
     Dosage: 5 MG, 1 IN 1 D, ORAL
     Route: 048
     Dates: start: 20080313, end: 20080430
  2. JUVELA N (TOCOPHEROL0 [Concomitant]

REACTIONS (1)
  - SUDDEN DEATH [None]
